FAERS Safety Report 4826717-2 (Version None)
Quarter: 2005Q4

REPORT INFORMATION
  Report Type: 
  Country: None (occurrence: None)
  Receive Date: 20051111
  Receipt Date: 20051111
  Transmission Date: 20060501
  Serious: Yes (Life-Threatening, Hospitalization, Disabling)
  Sender: FDA-Public Use
  Company Number: None

PATIENT
  Age: 68 Year
  Sex: Male
  Weight: 89.8122 kg

DRUGS (2)
  1. MORPHINE [Suspect]
     Indication: BACK INJURY
     Dosage: CONTINUOUS INFUSION    IT
     Route: 037
  2. MORPHINE [Suspect]
     Indication: PAIN
     Dosage: CONTINUOUS INFUSION    IT
     Route: 037

REACTIONS (3)
  - DEPRESSED LEVEL OF CONSCIOUSNESS [None]
  - DURAL TEAR [None]
  - RESPIRATORY ARREST [None]
